FAERS Safety Report 19902352 (Version 1)
Quarter: 2021Q3

REPORT INFORMATION
  Report Type: Spontaneous
  Country: US (occurrence: US)
  Receive Date: 20210930
  Receipt Date: 20210930
  Transmission Date: 20211014
  Serious: No
  Sender: FDA-Public Use
  Company Number: US-SA-2021SA316600

PATIENT
  Sex: Male

DRUGS (7)
  1. LMX4 [Concomitant]
     Active Substance: LIDOCAINE
  2. NORMAL SALINE [Concomitant]
     Active Substance: SODIUM CHLORIDE
  3. STERILE WATER [Concomitant]
     Active Substance: WATER
  4. EPINEPHRINE. [Concomitant]
     Active Substance: EPINEPHRINE
  5. CHILDREN^S MULTIVITAMIN [Concomitant]
  6. HEPARIN [Concomitant]
     Active Substance: HEPARIN SODIUM
  7. CEREZYME [Suspect]
     Active Substance: IMIGLUCERASE
     Indication: GAUCHER^S DISEASE
     Dosage: 1600 IU, QOW
     Route: 042
     Dates: start: 20180608

REACTIONS (1)
  - Tooth fracture [Recovered/Resolved]
